FAERS Safety Report 17191012 (Version 1)
Quarter: 2019Q4

REPORT INFORMATION
  Report Type: Spontaneous
  Country: SE (occurrence: SE)
  Receive Date: 20191223
  Receipt Date: 20191223
  Transmission Date: 20200122
  Serious: Yes (Hospitalization)
  Sender: FDA-Public Use
  Company Number: SE-TEVA-2019-SE-1155672

PATIENT
  Sex: Male

DRUGS (4)
  1. ANTABUS [Concomitant]
     Active Substance: DISULFIRAM
     Route: 048
  2. STESOLID [Suspect]
     Active Substance: DIAZEPAM
     Dosage: 7 STESOLID
     Route: 048
     Dates: start: 20180820, end: 20180820
  3. PROPAVAN [Suspect]
     Active Substance: PROPIOMAZINE
     Dosage: A LOT
     Route: 048
     Dates: start: 20180820, end: 20180820
  4. CITODON [Suspect]
     Active Substance: ACETAMINOPHEN\CODEINE PHOSPHATE
     Dosage: 3 CITODON
     Route: 048
     Dates: start: 20180820, end: 20180820

REACTIONS (2)
  - Intentional overdose [Unknown]
  - Intentional self-injury [Unknown]

NARRATIVE: CASE EVENT DATE: 20180820
